FAERS Safety Report 9671286 (Version 1)
Quarter: 2013Q4

REPORT INFORMATION
  Report Type: Spontaneous
  Country: IN (occurrence: IN)
  Receive Date: 20131106
  Receipt Date: 20131106
  Transmission Date: 20140711
  Serious: Yes (Hospitalization)
  Sender: FDA-Public Use
  Company Number: IN-B.I. PHARMACEUTICALS,INC./RIDGEFIELD-2013-BI-35280IG

PATIENT
  Sex: Male

DRUGS (2)
  1. PRADAXA [Suspect]
  2. ANTILIPIDS THERAPY [Concomitant]

REACTIONS (1)
  - Oesophageal candidiasis [Recovered/Resolved]
